FAERS Safety Report 11162561 (Version 1)
Quarter: 2015Q2

REPORT INFORMATION
  Report Type: Spontaneous
  Country: US (occurrence: US)
  Receive Date: 20150604
  Receipt Date: 20150604
  Transmission Date: 20150821
  Serious: No
  Sender: FDA-Public Use
  Company Number: US-SA-2014SA172907

PATIENT
  Age: 70 Year
  Sex: Male
  Weight: 96.16 kg

DRUGS (1)
  1. LANTUS SOLOSTAR [Suspect]
     Active Substance: INSULIN GLARGINE
     Indication: TYPE 2 DIABETES MELLITUS
     Dosage: DOSE:54 AM/ 52 PM, 106, UNITA NOT SPECIFIED DAILY
     Route: 065
     Dates: start: 2011

REACTIONS (3)
  - Hearing impaired [Unknown]
  - Drug administration error [Unknown]
  - Condition aggravated [Unknown]
